FAERS Safety Report 10034463 (Version 1)
Quarter: 2014Q1

REPORT INFORMATION
  Report Type: Spontaneous
  Country: US (occurrence: None)
  Receive Date: 20140321
  Receipt Date: 20140321
  Transmission Date: 20141002
  Serious: Yes (Hospitalization)
  Sender: FDA-Public Use
  Company Number: UTC-045876

PATIENT
  Age: 64 Year
  Sex: Female

DRUGS (2)
  1. TYVASO [Suspect]
     Dosage: 18 TO 54 MCG (4 IN 1 D), INHALATION
     Route: 055
     Dates: start: 20111128
  2. REVATIO (SILDENAFIL CITRATE) (UNKNOWN) [Concomitant]

REACTIONS (2)
  - Bronchitis [None]
  - Dyspnoea [None]
